FAERS Safety Report 21733844 (Version 3)
Quarter: 2023Q1

REPORT INFORMATION
  Report Type: Report from Study
  Country: CA (occurrence: CA)
  Receive Date: 20221215
  Receipt Date: 20230330
  Transmission Date: 20230417
  Serious: Yes (Other)
  Sender: FDA-Public Use
  Company Number: CA-AMGEN-CANSL2022179899

PATIENT
  Age: 78 Year
  Sex: Male

DRUGS (2)
  1. AVSOLA [Suspect]
     Active Substance: INFLIXIMAB-AXXQ
     Indication: Crohn^s disease
     Dosage: 5 WEEKS
     Route: 065
     Dates: start: 20220808
  2. AVSOLA [Suspect]
     Active Substance: INFLIXIMAB-AXXQ
     Dosage: 5 WEEKS
     Route: 065

REACTIONS (7)
  - Crohn^s disease [Recovering/Resolving]
  - Faecaloma [Unknown]
  - Haematochezia [Unknown]
  - Urinary tract infection [Unknown]
  - Off label use [Unknown]
  - Proctalgia [Unknown]
  - Diarrhoea [Unknown]

NARRATIVE: CASE EVENT DATE: 20220101
